FAERS Safety Report 22032141 (Version 1)
Quarter: 2023Q1

REPORT INFORMATION
  Report Type: Spontaneous
  Country: HR (occurrence: HR)
  Receive Date: 20230224
  Receipt Date: 20230224
  Transmission Date: 20230418
  Serious: Yes (Other)
  Sender: FDA-Public Use
  Company Number: HR-MLMSERVICE-20230131-4067367-1

PATIENT

DRUGS (2)
  1. MOXIFLOXACIN HYDROCHLORIDE [Suspect]
     Active Substance: MOXIFLOXACIN HYDROCHLORIDE
     Indication: COVID-19 pneumonia
     Route: 048
     Dates: start: 202104
  2. DEXAMETHASONE [Concomitant]
     Active Substance: DEXAMETHASONE
     Indication: COVID-19 pneumonia
     Route: 065
     Dates: start: 202104

REACTIONS (4)
  - Photophobia [Unknown]
  - Corneal deposits [Unknown]
  - Iris transillumination defect [Unknown]
  - Iris hypopigmentation [Unknown]

NARRATIVE: CASE EVENT DATE: 20210501
